FAERS Safety Report 19159838 (Version 1)
Quarter: 2021Q2

REPORT INFORMATION
  Report Type: Report from Study
  Country: US (occurrence: US)
  Receive Date: 20210420
  Receipt Date: 20210420
  Transmission Date: 20210717
  Serious: Yes (Hospitalization)
  Sender: FDA-Public Use
  Company Number: US-EXELIXIS-XL18421039402

PATIENT

DRUGS (6)
  1. PLACEBO [Suspect]
     Active Substance: UNSPECIFIED INGREDIENT
     Indication: PANCREATIC CARCINOMA
     Dosage: 60 MG, QD
     Route: 048
     Dates: start: 20201117
  2. PLACEBO [Suspect]
     Active Substance: UNSPECIFIED INGREDIENT
     Dosage: 20 MG, QD
     Route: 048
  3. BLINDED XL184 [Suspect]
     Active Substance: CABOZANTINIB
     Dosage: 20 MG, QD
     Route: 048
  4. BLINDED XL184 [Suspect]
     Active Substance: CABOZANTINIB
     Indication: PANCREATIC CARCINOMA
     Dosage: 60 MG, QD
     Route: 048
     Dates: start: 20201117
  5. PLACEBO [Suspect]
     Active Substance: UNSPECIFIED INGREDIENT
     Dosage: 40 MG, QD
     Route: 048
  6. BLINDED XL184 [Suspect]
     Active Substance: CABOZANTINIB
     Dosage: 40 MG, QD
     Route: 048

REACTIONS (2)
  - Hypokalaemia [Not Recovered/Not Resolved]
  - Alkalosis [Not Recovered/Not Resolved]

NARRATIVE: CASE EVENT DATE: 20210324
